FAERS Safety Report 19026196 (Version 1)
Quarter: 2021Q1

REPORT INFORMATION
  Report Type: Spontaneous
  Country: US (occurrence: US)
  Receive Date: 20210318
  Receipt Date: 20210318
  Transmission Date: 20210420
  Serious: Yes (Other)
  Sender: FDA-Public Use
  Company Number: None

PATIENT
  Age: 72 Year
  Sex: Male
  Weight: 92.25 kg

DRUGS (16)
  1. BUPROPION. [Concomitant]
     Active Substance: BUPROPION
  2. PIOGLITAZONE HCL 30MG TAB/GENERIC FOR ACTOS 30MG TABLET [Suspect]
     Active Substance: PIOGLITAZONE HYDROCHLORIDE
     Indication: DIABETES MELLITUS
     Dosage: ?          QUANTITY:1 TABLET(S);?
     Route: 048
     Dates: start: 20160601, end: 20210305
  3. METFORMIN [Concomitant]
     Active Substance: METFORMIN HYDROCHLORIDE
  4. ENALAPRIL [Concomitant]
     Active Substance: ENALAPRIL
  5. JANUVIA [Concomitant]
     Active Substance: SITAGLIPTIN PHOSPHATE
  6. AMLODIPINE [Concomitant]
     Active Substance: AMLODIPINE BESYLATE
  7. ASPIRIN. [Concomitant]
     Active Substance: ASPIRIN
  8. FLONASE [Concomitant]
     Active Substance: FLUTICASONE PROPIONATE
  9. GLIPIZIDE. [Concomitant]
     Active Substance: GLIPIZIDE
  10. TAMSULOSIN [Concomitant]
     Active Substance: TAMSULOSIN
  11. METOPROLOL. [Concomitant]
     Active Substance: METOPROLOL
  12. HYDROCHLOROTHIAZIDE. [Concomitant]
     Active Substance: HYDROCHLOROTHIAZIDE
  13. VITAMIN D [Concomitant]
     Active Substance: VITAMIN D NOS
  14. SIMVASTATIN. [Concomitant]
     Active Substance: SIMVASTATIN
  15. CELECOXIB. [Concomitant]
     Active Substance: CELECOXIB
  16. FINASTERIDE. [Concomitant]
     Active Substance: FINASTERIDE

REACTIONS (2)
  - Therapy cessation [None]
  - Bladder cancer [None]

NARRATIVE: CASE EVENT DATE: 20200104
